FAERS Safety Report 7859613-7 (Version None)
Quarter: 2011Q4

REPORT INFORMATION
  Report Type: 
  Country: None (occurrence: None)
  Receive Date: 20111027
  Receipt Date: 20111013
  Transmission Date: 20120403
  Serious: Yes (Hospitalization, Other)
  Sender: FDA-Public Use
  Company Number: US-BAYER-2011-052545

PATIENT
  Sex: Female
  Weight: 104.31 kg

DRUGS (13)
  1. METHYLPREDNISOLONE [Concomitant]
     Dosage: 4 MG, UNK
     Dates: start: 20090807
  2. AMOXICILLIN AND CLAVULANATE POTASSIUM [Concomitant]
     Dosage: UNK
     Dates: start: 20090820
  3. MORPHINE [Concomitant]
     Dosage: UNK
     Dates: start: 20090801
  4. VENTOLIN [Concomitant]
     Dosage: 4 PUFF(S), UNK
     Route: 055
  5. NATALCARE [Concomitant]
     Dosage: UNK
     Route: 048
  6. PROMETHAZINE [Concomitant]
     Dosage: 25 MG, UNK
     Route: 048
  7. FERROUS SULFATE TAB [Concomitant]
     Dosage: 325 MG, UNK
     Route: 048
  8. MAGNESIUM CITRATE [Concomitant]
     Indication: CONSTIPATION
  9. CIPROFLOXACIN [Concomitant]
     Dosage: 250 MG, UNK
     Dates: start: 20090619
  10. DROSPIRENONE AND ETHINYL ESTRADIOL [Suspect]
     Indication: CONTRACEPTION
     Dosage: UNK
     Dates: start: 20090101, end: 20100101
  11. PREVACID [Concomitant]
     Dosage: 30 MG, UNK
     Dates: start: 20090507
  12. AZITHROMYCIN [Concomitant]
     Dosage: 250 MG, UNK
     Dates: start: 20090807
  13. ALBUTEROL [Concomitant]
     Dosage: UNK
     Dates: start: 20090101

REACTIONS (4)
  - INJURY [None]
  - PAIN [None]
  - CHOLECYSTITIS CHRONIC [None]
  - CHOLELITHIASIS [None]
